FAERS Safety Report 5905496-1 (Version None)
Quarter: 2008Q4

REPORT INFORMATION
  Report Type: 
  Country: None (occurrence: None)
  Receive Date: 20081002
  Receipt Date: 20080922
  Transmission Date: 20090506
  Serious: Yes (Hospitalization)
  Sender: FDA-Public Use
  Company Number: DE-JNJFOC-20080902186

PATIENT
  Sex: Male
  Weight: 64 kg

DRUGS (6)
  1. TMC125 [Suspect]
     Route: 048
  2. TMC125 [Suspect]
     Indication: HIV INFECTION
     Route: 048
  3. PREZISTA [Concomitant]
     Indication: HIV INFECTION
     Route: 048
  4. RITONAVIR [Concomitant]
     Indication: HIV INFECTION
     Route: 048
  5. RALTEGRAVIR [Concomitant]
     Indication: HIV INFECTION
  6. COMBIVIR [Concomitant]
     Indication: HIV INFECTION

REACTIONS (1)
  - APHTHOUS STOMATITIS [None]
